FAERS Safety Report 16901772 (Version 3)
Quarter: 2019Q4

REPORT INFORMATION
  Report Type: Report from Study
  Country: None (occurrence: US)
  Receive Date: 20191010
  Receipt Date: 20191211
  Transmission Date: 20200122
  Serious: Yes (Other)
  Sender: FDA-Public Use
  Company Number: US-ABBVIE-19K-163-2952681-00

PATIENT
  Age: 49 Year
  Sex: Male
  Weight: 99.88 kg

DRUGS (1)
  1. HUMIRA [Suspect]
     Active Substance: ADALIMUMAB
     Indication: ANKYLOSING SPONDYLITIS
     Route: 058
     Dates: start: 2017, end: 201909

REACTIONS (7)
  - Dural tear [Recovered/Resolved]
  - Road traffic accident [Recovering/Resolving]
  - Cerebrospinal fluid leakage [Unknown]
  - Head injury [Recovering/Resolving]
  - Musculoskeletal pain [Not Recovered/Not Resolved]
  - Limb injury [Recovering/Resolving]
  - Arnold-Chiari malformation [Recovering/Resolving]

NARRATIVE: CASE EVENT DATE: 201810
